FAERS Safety Report 14588236 (Version 3)
Quarter: 2018Q3

REPORT INFORMATION
  Report Type: Spontaneous
  Country: CA (occurrence: CA)
  Receive Date: 20180301
  Receipt Date: 20180703
  Transmission Date: 20181010
  Serious: Yes (Other)
  Sender: FDA-Public Use
  Company Number: CA-PFIZER INC-2017373446

PATIENT
  Age: 83 Year
  Sex: Female
  Weight: 69 kg

DRUGS (13)
  1. XELJANZ [Suspect]
     Active Substance: TOFACITINIB CITRATE
     Indication: RHEUMATOID ARTHRITIS
     Dosage: 5 MG, TWICE DAILY
     Route: 048
     Dates: start: 20170819
  2. SULFASALAZINE. [Concomitant]
     Active Substance: SULFASALAZINE
     Indication: RHEUMATOID ARTHRITIS
     Dosage: 500 MG, 1X/DAY
     Route: 048
     Dates: start: 20180607
  3. PROLIA [Concomitant]
     Active Substance: DENOSUMAB
     Dosage: UNK, SINGLE
  4. ASA EC [Concomitant]
     Active Substance: ASPIRIN
     Dosage: 81 MG, DAILY
  5. HYDROXYCHLOROQUINE [Concomitant]
     Active Substance: HYDROXYCHLOROQUINE
     Dosage: 200 MG, 1X/DAY
     Route: 048
  6. INSULIN REGULAR /01223201/ [Concomitant]
     Active Substance: INSULIN BEEF
     Dosage: UNK
     Route: 058
  7. XELJANZ [Suspect]
     Active Substance: TOFACITINIB CITRATE
     Dosage: UNK
  8. MELSON ER [Concomitant]
     Dosage: 10 MG, UNK
  9. TYLENOL WITH CODEINE [Concomitant]
     Active Substance: ACETAMINOPHEN\CODEINE PHOSPHATE
     Dosage: UNK
  10. NIFEDIPINE. [Concomitant]
     Active Substance: NIFEDIPINE
     Dosage: 30 MG, UNK
     Route: 048
  11. HYDROXYCHLOROQUINE [Concomitant]
     Active Substance: HYDROXYCHLOROQUINE
     Indication: RHEUMATOID ARTHRITIS
     Dosage: 400 MG, 1X/DAY
     Route: 048
  12. CANDESARTAN SANDOZ [Concomitant]
     Active Substance: CANDESARTAN
     Dosage: 8 MG, UNK
  13. INSULIN NPH /01223407/ [Concomitant]
     Dosage: UNK
     Route: 058

REACTIONS (4)
  - Osteoarthritis [Unknown]
  - Headache [Unknown]
  - Drug effect incomplete [Not Recovered/Not Resolved]
  - Intervertebral disc degeneration [Not Recovered/Not Resolved]
